FAERS Safety Report 4830779-6 (Version None)
Quarter: 2005Q4

REPORT INFORMATION
  Report Type: 
  Country: None (occurrence: None)
  Receive Date: 20051117
  Receipt Date: 20051003
  Transmission Date: 20060501
  Serious: Yes (Life-Threatening, Hospitalization)
  Sender: FDA-Public Use
  Company Number: AU-MERCK-0510AUS00005

PATIENT
  Age: 68 Year
  Sex: Male

DRUGS (9)
  1. ZETIA [Suspect]
     Indication: HYPERLIPIDAEMIA
     Route: 048
     Dates: start: 20050801, end: 20050101
  2. GEMFIBROZIL [Suspect]
     Indication: HYPERLIPIDAEMIA
     Route: 048
     Dates: end: 20050101
  3. ZOCOR [Suspect]
     Indication: HYPERLIPIDAEMIA
     Route: 048
     Dates: end: 20050101
  4. CLARITHROMYCIN [Suspect]
     Route: 048
     Dates: start: 20050101
  5. CEFTRIAXONE SODIUM [Suspect]
     Route: 042
     Dates: end: 20050101
  6. AMIODARONE [Concomitant]
     Route: 048
  7. FUROSEMIDE SODIUM [Concomitant]
     Route: 048
  8. CANDESARTAN CILEXETIL [Concomitant]
     Route: 048
  9. WARFARIN [Concomitant]
     Route: 048

REACTIONS (2)
  - PNEUMONIA [None]
  - RHABDOMYOLYSIS [None]
